FAERS Safety Report 7999867-X (Version None)
Quarter: 2011Q4

REPORT INFORMATION
  Report Type: 
  Country: None (occurrence: None)
  Receive Date: 20111222
  Receipt Date: 20111212
  Transmission Date: 20120403
  Serious: No
  Sender: FDA-Public Use
  Company Number: US-BIOGENIDEC-2011BI043608

PATIENT
  Age: 31 Year
  Sex: Female

DRUGS (3)
  1. TYSABRI [Suspect]
     Indication: MULTIPLE SCLEROSIS
     Route: 042
     Dates: start: 20110926, end: 20111024
  2. AVONEX [Concomitant]
     Indication: MULTIPLE SCLEROSIS
     Route: 030
     Dates: start: 20011005
  3. VESICARE [Concomitant]
     Indication: URINARY INCONTINENCE

REACTIONS (7)
  - HYPERSENSITIVITY [None]
  - CHEST DISCOMFORT [None]
  - DRUG SPECIFIC ANTIBODY PRESENT [None]
  - VERTIGO [None]
  - SOMNOLENCE [None]
  - ASTHENIA [None]
  - FATIGUE [None]
